FAERS Safety Report 24108726 (Version 1)
Quarter: 2024Q3

REPORT INFORMATION
  Report Type: Report from Study
  Country: US (occurrence: None)
  Receive Date: 20240718
  Receipt Date: 20240718
  Transmission Date: 20241016
  Serious: Yes (Other)
  Sender: ASTRAZENECA
  Company Number: 2020SF60238

PATIENT
  Sex: Female

DRUGS (6)
  1. LYNPARZA [Suspect]
     Active Substance: OLAPARIB
     Indication: Ovarian cancer
     Route: 048
     Dates: start: 202008
  2. LYNPARZA [Suspect]
     Active Substance: OLAPARIB
     Indication: Platelet count decreased
     Route: 048
     Dates: start: 202008
  3. LYNPARZA [Suspect]
     Active Substance: OLAPARIB
     Indication: Blood potassium decreased
     Route: 048
     Dates: start: 202008
  4. FLUZONE HIGH-DOSE QUAD [Concomitant]
  5. PLAVIX [Concomitant]
     Active Substance: CLOPIDOGREL BISULFATE
  6. VITAMIN D3 [Concomitant]
     Active Substance: CHOLECALCIFEROL

REACTIONS (9)
  - End stage renal disease [Unknown]
  - Diarrhoea [Unknown]
  - Blood iron increased [Unknown]
  - Neuropathy peripheral [Unknown]
  - Pain in extremity [Unknown]
  - Pain [Unknown]
  - Asthenia [Unknown]
  - Weight fluctuation [Unknown]
  - Laboratory test abnormal [Unknown]
